FAERS Safety Report 9441191 (Version 1)
Quarter: 2013Q3

REPORT INFORMATION
  Report Type: Spontaneous
  Country: ES (occurrence: ES)
  Receive Date: 20130805
  Receipt Date: 20130805
  Transmission Date: 20140515
  Serious: Yes (Other)
  Sender: FDA-Public Use
  Company Number: ES-VERTEX PHARMACEUTICALS INC-2013-008532

PATIENT
  Age: 47 Year
  Sex: Male

DRUGS (3)
  1. INCIVO [Suspect]
     Indication: HEPATITIS C
     Dosage: 2250 MG, QD, TABLET
     Route: 048
  2. RIBAVIRIN [Concomitant]
     Indication: HEPATITIS C
     Dosage: DOSAGE FORM: UNSPECIFIED
     Route: 065
  3. INTERFERON ALFA [Concomitant]
     Indication: HEPATITIS C
     Dosage: DOSAGE FORM: UNSPECIFIED
     Route: 065

REACTIONS (1)
  - Oedema peripheral [Recovered/Resolved]
